FAERS Safety Report 19952717 (Version 1)
Quarter: 2021Q4

REPORT INFORMATION
  Report Type: Spontaneous
  Country: FR (occurrence: FR)
  Receive Date: 20211014
  Receipt Date: 20211014
  Transmission Date: 20220303
  Serious: Yes (Other)
  Sender: FDA-Public Use
  Company Number: FR-AFSSAPS-LY202111450

PATIENT
  Age: 19 Year
  Sex: Female
  Weight: 69 kg

DRUGS (3)
  1. AMOXICILLIN [Suspect]
     Active Substance: AMOXICILLIN
     Indication: Tonsillitis
     Dosage: 1 GRAM
     Route: 048
     Dates: start: 20210921, end: 20210922
  2. ADVIL [Suspect]
     Active Substance: IBUPROFEN
     Indication: Tonsillitis
     Dosage: 1 DOSAGE FORM
     Route: 048
     Dates: start: 20210921, end: 20210922
  3. ETHINYL ESTRADIOL\LEVONORGESTREL [Suspect]
     Active Substance: ETHINYL ESTRADIOL\LEVONORGESTREL
     Indication: Oral contraception
     Dosage: 1 DOSAGE FORM
     Route: 048
     Dates: start: 20201201

REACTIONS (1)
  - Pancreatitis acute [Recovering/Resolving]

NARRATIVE: CASE EVENT DATE: 20210922
